FAERS Safety Report 17477132 (Version 1)
Quarter: 2020Q1

REPORT INFORMATION
  Report Type: Report from Study
  Country: CO (occurrence: CO)
  Receive Date: 20200228
  Receipt Date: 20200228
  Transmission Date: 20200409
  Serious: Yes (Hospitalization)
  Sender: FDA-Public Use
  Company Number: CO-JNJFOC-20190802745

PATIENT
  Age: 48 Year
  Sex: Female
  Weight: 48 kg

DRUGS (1)
  1. SIMPONI [Suspect]
     Active Substance: GOLIMUMAB
     Indication: ANKYLOSING SPONDYLITIS
     Route: 058
     Dates: start: 20190726, end: 20190926

REACTIONS (6)
  - Weight decreased [Not Recovered/Not Resolved]
  - Chronic gastritis [Unknown]
  - Dizziness [Not Recovered/Not Resolved]
  - Mass [Unknown]
  - Blood pressure decreased [Not Recovered/Not Resolved]
  - Bile duct stone [Not Recovered/Not Resolved]

NARRATIVE: CASE EVENT DATE: 201907
